FAERS Safety Report 9009447 (Version 1)
Quarter: 2013Q1

REPORT INFORMATION
  Report Type: Spontaneous
  Country: US (occurrence: US)
  Receive Date: 20130112
  Receipt Date: 20130112
  Transmission Date: 20140127
  Serious: Yes (Other)
  Sender: FDA-Public Use
  Company Number: US-009507513-0812USA01168

PATIENT
  Age: 6 Year
  Sex: Male
  Weight: 19.96 kg

DRUGS (1)
  1. SINGULAIR [Suspect]
     Indication: ASTHMA
     Route: 048
     Dates: start: 20080627, end: 20080628

REACTIONS (5)
  - Abnormal behaviour [Unknown]
  - Affective disorder [Unknown]
  - Ill-defined disorder [Unknown]
  - Screaming [Unknown]
  - Thinking abnormal [Unknown]
